FAERS Safety Report 6550235-7 (Version None)
Quarter: 2010Q1

REPORT INFORMATION
  Report Type: 
  Country: None (occurrence: None)
  Receive Date: 20100125
  Receipt Date: 20100121
  Transmission Date: 20100710
  Serious: Yes (Hospitalization)
  Sender: FDA-Public Use
  Company Number: CA-MERCK-0801CAN00226

PATIENT
  Age: 69 Year
  Sex: Male

DRUGS (19)
  1. INVANZ [Suspect]
     Indication: OSTEOMYELITIS
     Route: 042
     Dates: start: 20071201, end: 20080101
  2. ELAVIL [Concomitant]
     Indication: NEURALGIA
     Route: 048
  3. LIPITOR [Concomitant]
     Indication: BLOOD CHOLESTEROL
     Route: 048
  4. COUMADIN [Concomitant]
     Indication: SYSTEMIC LUPUS ERYTHEMATOSUS
     Route: 048
     Dates: end: 20080131
  5. COUMADIN [Concomitant]
     Indication: ARTERIOSCLEROSIS CORONARY ARTERY
     Route: 048
     Dates: end: 20080131
  6. OS-CAL [Concomitant]
     Indication: OSTEOPOROSIS PROPHYLAXIS
     Route: 048
  7. PLAVIX [Concomitant]
     Indication: ARTERIOSCLEROSIS CORONARY ARTERY
     Route: 048
  8. COLACE [Concomitant]
     Indication: CONSTIPATION
     Route: 048
  9. DURAGESIC-100 [Concomitant]
     Indication: PAIN
     Route: 065
  10. PLAQUENIL [Concomitant]
     Indication: SYSTEMIC LUPUS ERYTHEMATOSUS
     Route: 048
  11. ATARAX [Concomitant]
     Indication: PRURITUS
     Route: 048
  12. PANTOPRAZOLE [Concomitant]
     Indication: PROPHYLAXIS AGAINST GASTROINTESTINAL ULCER
     Route: 048
  13. DELTASONE [Concomitant]
     Indication: SYSTEMIC LUPUS ERYTHEMATOSUS
     Route: 048
  14. VANCOCIN INJECTION [Concomitant]
     Indication: OSTEOMYELITIS
     Route: 042
  15. VITAMIN D (UNSPECIFIED) [Concomitant]
     Indication: OSTEOPOROSIS PROPHYLAXIS
     Route: 048
  16. MONOCOR [Concomitant]
     Indication: ARTERIOSCLEROSIS CORONARY ARTERY
     Route: 048
  17. PENTOXIFYLLINE [Concomitant]
     Indication: SYSTEMIC LUPUS ERYTHEMATOSUS
     Route: 048
  18. HUMULIN N [Concomitant]
     Route: 065
  19. INSULIN LISPRO [Concomitant]
     Route: 065

REACTIONS (2)
  - ASTHENIA [None]
  - FALL [None]
